FAERS Safety Report 8429623-X (Version None)
Quarter: 2012Q2

REPORT INFORMATION
  Report Type: 
  Country: None (occurrence: None)
  Receive Date: 20120612
  Receipt Date: 20120606
  Transmission Date: 20120825
  Serious: Yes (Disabling, Other)
  Sender: FDA-Public Use
  Company Number: CA-BAYER-2012-055849

PATIENT
  Age: 51 Year
  Sex: Male
  Weight: 79.365 kg

DRUGS (3)
  1. ISOTRETINOIN [Concomitant]
  2. ACCUTANE [Concomitant]
  3. AVELOX [Suspect]
     Dosage: 400 MG, QD
     Route: 048

REACTIONS (29)
  - HEART RATE ABNORMAL [None]
  - BLOOD PRESSURE FLUCTUATION [None]
  - HEADACHE [None]
  - ENERGY INCREASED [None]
  - FEELING ABNORMAL [None]
  - NEUROPATHY PERIPHERAL [None]
  - PALPITATIONS [None]
  - RHINORRHOEA [None]
  - THIRST [None]
  - VISION BLURRED [None]
  - MUSCLE CONTRACTIONS INVOLUNTARY [None]
  - MYASTHENIA GRAVIS [None]
  - PAIN [None]
  - ANXIETY [None]
  - RENAL FAILURE [None]
  - TINNITUS [None]
  - ARTHRALGIA [None]
  - DYSPNOEA [None]
  - PAIN IN EXTREMITY [None]
  - SENSATION OF HEAVINESS [None]
  - CONVULSION [None]
  - DIZZINESS [None]
  - EXTERNAL EAR DISORDER [None]
  - NASAL CONGESTION [None]
  - PURPURA [None]
  - THROAT IRRITATION [None]
  - VITREOUS FLOATERS [None]
  - BODY TEMPERATURE FLUCTUATION [None]
  - PSYCHOMOTOR HYPERACTIVITY [None]
